FAERS Safety Report 24829685 (Version 1)
Quarter: 2025Q1

REPORT INFORMATION
  Report Type: Report from Study
  Country: US (occurrence: US)
  Receive Date: 20250110
  Receipt Date: 20250110
  Transmission Date: 20250409
  Serious: Yes (Other)
  Sender: ACADIA PHARMACEUTICALS
  Company Number: US-ACADIA PHARMACEUTICALS INC.-ACA-2025-PIM-000250

PATIENT
  Age: 73 Year
  Sex: Male

DRUGS (14)
  1. NUPLAZID [Suspect]
     Active Substance: PIMAVANSERIN TARTRATE
     Indication: Parkinson^s disease psychosis
     Dosage: 34 MILLIGRAM, QD
     Route: 048
     Dates: start: 20230322
  2. XARELTO [Concomitant]
     Active Substance: RIVAROXABAN
  3. CARBIDOPA\LEVODOPA [Concomitant]
     Active Substance: CARBIDOPA\LEVODOPA
  4. RASAGILINE [Concomitant]
     Active Substance: RASAGILINE
  5. ATORVASTATIN [Concomitant]
     Active Substance: ATORVASTATIN
  6. QUETIAPINE [Concomitant]
     Active Substance: QUETIAPINE
  7. FINASTERIDE [Concomitant]
     Active Substance: FINASTERIDE
  8. TAMSULOSIN [Concomitant]
     Active Substance: TAMSULOSIN
  9. SOTALOL [Concomitant]
     Active Substance: SOTALOL
  10. MELATONIN [Concomitant]
     Active Substance: MELATONIN
  11. VITAMIN B1 [Concomitant]
     Active Substance: THIAMINE HYDROCHLORIDE
  12. A-VITEL [Concomitant]
  13. OMEPRAZOLE [Concomitant]
     Active Substance: OMEPRAZOLE
  14. DONEPEZIL [Concomitant]
     Active Substance: DONEPEZIL

REACTIONS (2)
  - Dementia [Unknown]
  - Hallucination [Unknown]

NARRATIVE: CASE EVENT DATE: 20250107
